FAERS Safety Report 5634645-8 (Version None)
Quarter: 2008Q1

REPORT INFORMATION
  Report Type: 
  Country: None (occurrence: None)
  Receive Date: 20080222
  Receipt Date: 20080214
  Transmission Date: 20080703
  Serious: Yes (Other)
  Sender: FDA-Public Use
  Company Number: PT-ABBOTT-07P-130-0355719-01

PATIENT
  Sex: Male
  Weight: 102 kg

DRUGS (12)
  1. HUMIRA [Suspect]
     Indication: RHEUMATOID ARTHRITIS
     Route: 058
     Dates: start: 20041101, end: 20060701
  2. METHOTREXATE [Concomitant]
     Indication: RHEUMATOID ARTHRITIS
     Dates: start: 20041125, end: 20061120
  3. METHOTREXATE [Concomitant]
     Dates: start: 20061120
  4. BICALUTAMIDE [Concomitant]
     Indication: PROSTATE CANCER
     Dates: start: 20060601, end: 20070601
  5. NAPROXEN [Concomitant]
     Indication: RHEUMATOID ARTHRITIS
     Dates: start: 20060424
  6. ESOMEPRAZOLE MAGNESIUM [Concomitant]
     Indication: PROPHYLAXIS AGAINST GASTROINTESTINAL ULCER
     Dates: start: 20060424
  7. FOLIC ACID [Concomitant]
     Indication: VITAMIN SUPPLEMENTATION
  8. RAMIPRIL [Concomitant]
     Indication: HYPERTENSION
     Dates: start: 20000101
  9. FLUOXETINE HYDROCHLORIDE [Concomitant]
     Indication: DEPRESSION
  10. HUMIRA [Concomitant]
     Indication: RHEUMATOID ARTHRITIS
     Route: 058
     Dates: start: 20040525
  11. PREDNISONE TAB [Concomitant]
     Indication: RHEUMATOID ARTHRITIS
     Dates: start: 20041125, end: 20061120
  12. PREDNISONE TAB [Concomitant]
     Dates: start: 20061110

REACTIONS (1)
  - PROSTATE CANCER RECURRENT [None]
